FAERS Safety Report 11768170 (Version 1)
Quarter: 2015Q4

REPORT INFORMATION
  Report Type: Spontaneous
  Country: US (occurrence: US)
  Receive Date: 20151123
  Receipt Date: 20151123
  Transmission Date: 20160304
  Serious: No
  Sender: FDA-Public Use
  Company Number: US-JNJFOC-20151102656

PATIENT
  Age: 90 Year
  Sex: Female
  Weight: 49.9 kg

DRUGS (3)
  1. ZYRTEC [Suspect]
     Active Substance: CETIRIZINE HYDROCHLORIDE
     Route: 065
  2. ZYRTEC [Suspect]
     Active Substance: CETIRIZINE HYDROCHLORIDE
     Indication: PRURITUS GENERALISED
     Dosage: EVERY MORNING
     Route: 065
  3. TYLENOL PM [Concomitant]
     Active Substance: ACETAMINOPHEN\DIPHENHYDRAMINE
     Indication: ANTIALLERGIC THERAPY
     Route: 048

REACTIONS (3)
  - Wrong patient received medication [Unknown]
  - Product use issue [Unknown]
  - Therapeutic response unexpected [Unknown]
